FAERS Safety Report 14446553 (Version 3)
Quarter: 2018Q1

REPORT INFORMATION
  Report Type: Spontaneous
  Country: BR (occurrence: BR)
  Receive Date: 20180126
  Receipt Date: 20180129
  Transmission Date: 20180509
  Serious: Yes (Death, Hospitalization, Congenital Anomaly, Other)
  Sender: FDA-Public Use
  Company Number: BR-B.I. PHARMACEUTICALS,INC./RIDGEFIELD-2018-BI-004425

PATIENT
  Sex: Female

DRUGS (4)
  1. ROSUVASTATINA [Suspect]
     Active Substance: ROSUVASTATIN
     Indication: BLOOD CHOLESTEROL INCREASED
     Route: 065
  2. JARDIANCE [Suspect]
     Active Substance: EMPAGLIFLOZIN
     Indication: BLOOD GLUCOSE ABNORMAL
     Route: 065
     Dates: start: 201703
  3. METFORMIN [Suspect]
     Active Substance: METFORMIN HYDROCHLORIDE
     Indication: BLOOD GLUCOSE ABNORMAL
     Route: 065
     Dates: start: 201703, end: 201704
  4. TRAYENTA [Suspect]
     Active Substance: LINAGLIPTIN
     Indication: BLOOD GLUCOSE ABNORMAL
     Route: 065
     Dates: start: 201703

REACTIONS (3)
  - Blood cholesterol increased [Unknown]
  - Pancreatitis acute [Fatal]
  - Blood creatine phosphokinase increased [Unknown]

NARRATIVE: CASE EVENT DATE: 201704
